FAERS Safety Report 8916616 (Version 1)
Quarter: 2012Q4

REPORT INFORMATION
  Report Type: 
  Country: GB (occurrence: GB)
  Receive Date: 20121120
  Receipt Date: 20121120
  Transmission Date: 20130627
  Serious: Yes (Disabling, Other)
  Sender: FDA-Public Use
  Company Number: GB-WATSON-2012-19673

PATIENT
  Age: 64 Year
  Sex: Female
  Weight: 61 kg

DRUGS (3)
  1. CLARITHROMYCIN (UNKNOWN) [Suspect]
     Indication: NASOPHARYNGITIS
     Dosage: 1000 mg, daily
     Route: 048
     Dates: start: 20120630, end: 20120704
  2. IBUPROFEN [Concomitant]
     Indication: PRODUCT USED FOR UNKNOWN INDICATION
     Dosage: unk
     Route: 065
  3. PARACETAMOL [Concomitant]
     Indication: PRODUCT USED FOR UNKNOWN INDICATION
     Dosage: unk
     Route: 065

REACTIONS (2)
  - Myositis [Not Recovered/Not Resolved]
  - Pain [Not Recovered/Not Resolved]
